FAERS Safety Report 8822937 (Version 1)
Quarter: 2012Q4

REPORT INFORMATION
  Report Type: 
  Country: US (occurrence: US)
  Receive Date: 20121003
  Receipt Date: 20121003
  Transmission Date: 20130627
  Serious: Yes (Hospitalization, Other)
  Sender: FDA-Public Use
  Company Number: US-ELI_LILLY_AND_COMPANY-US201209007037

PATIENT
  Sex: Female

DRUGS (2)
  1. HUMALOG LISPRO [Suspect]
     Dosage: UNK, unknown
     Dates: start: 2007
  2. LANTUS [Concomitant]
     Dosage: UNK
     Dates: start: 2007

REACTIONS (4)
  - Accident [Unknown]
  - Lower limb fracture [Unknown]
  - Hypoglycaemic unconsciousness [Unknown]
  - Glycosylated haemoglobin increased [Unknown]
